FAERS Safety Report 19838893 (Version 1)
Quarter: 2021Q3

REPORT INFORMATION
  Report Type: Spontaneous
  Country: US (occurrence: US)
  Receive Date: 20210915
  Receipt Date: 20210915
  Transmission Date: 20211014
  Serious: Yes (Life-Threatening, Hospitalization, Disabling)
  Sender: FDA-Public Use
  Company Number: None

PATIENT
  Age: 27 Year
  Sex: Male
  Weight: 76.5 kg

DRUGS (1)
  1. TRIAMCINOLONE [Suspect]
     Active Substance: TRIAMCINOLONE
     Dates: start: 20200404, end: 20200901

REACTIONS (4)
  - Addison^s disease [None]
  - Steroid withdrawal syndrome [None]
  - Fatigue [None]
  - Adrenal disorder [None]

NARRATIVE: CASE EVENT DATE: 20200404
